FAERS Safety Report 7006123-5 (Version None)
Quarter: 2010Q3

REPORT INFORMATION
  Report Type: 
  Country: None (occurrence: None)
  Receive Date: 20100921
  Receipt Date: 20100910
  Transmission Date: 20110219
  Serious: Yes (Other)
  Sender: FDA-Public Use
  Company Number: US-PFIZER INC-2010115587

PATIENT
  Sex: Female
  Weight: 65.76 kg

DRUGS (2)
  1. ARTHROTEC [Suspect]
     Indication: GASTROINTESTINAL PAIN
     Dosage: 1 DF (200 MCG/50 MG) DAILY, AS NEEDED
     Route: 048
     Dates: start: 20100801, end: 20100909
  2. MONTELUKAST SODIUM [Concomitant]
     Indication: ASTHMA
     Dosage: UNK

REACTIONS (7)
  - ABDOMINAL DISCOMFORT [None]
  - CHILLS [None]
  - CONVULSION [None]
  - FLUSHING [None]
  - HYPERHIDROSIS [None]
  - PAIN [None]
  - PARAESTHESIA [None]
